FAERS Safety Report 5353946-4 (Version None)
Quarter: 2007Q2

REPORT INFORMATION
  Report Type: 
  Country: None (occurrence: None)
  Receive Date: 20070521
  Receipt Date: 20070124
  Transmission Date: 20071010
  Serious: No
  Sender: FDA-Public Use
  Company Number: WAES 0701USA04177

PATIENT
  Age: 62 Year
  Sex: Female
  Weight: 61.2356 kg

DRUGS (6)
  1. JANUVIA [Suspect]
     Indication: DIABETES MELLITUS
     Dosage: 100 MG/DAILY/PO
     Route: 048
     Dates: start: 20061218
  2. ACTOS [Concomitant]
  3. AVALIDE [Concomitant]
  4. LEVOTHROID [Concomitant]
  5. PREVACID [Concomitant]
  6. METFORMIN HCL [Concomitant]

REACTIONS (1)
  - NAUSEA [None]
